FAERS Safety Report 17656873 (Version 2)
Quarter: 2020Q2

REPORT INFORMATION
  Report Type: Report from Study
  Country: US (occurrence: US)
  Receive Date: 20200410
  Receipt Date: 20200508
  Transmission Date: 20200713
  Serious: Yes (Hospitalization, Other)
  Sender: FDA-Public Use
  Company Number: US-GILEAD-2020-0458353

PATIENT
  Age: 6 Year
  Sex: Female

DRUGS (1)
  1. AZTREONAM LYSINE [Suspect]
     Active Substance: AZTREONAM LYSINE
     Indication: CYSTIC FIBROSIS
     Dosage: 75 MG, TID
     Route: 055

REACTIONS (3)
  - Pneumonia [Unknown]
  - Influenza [Unknown]
  - Off label use [Unknown]

NARRATIVE: CASE EVENT DATE: 202003
